FAERS Safety Report 7030847-7 (Version None)
Quarter: 2010Q4

REPORT INFORMATION
  Report Type: 
  Country: None (occurrence: None)
  Receive Date: 20101006
  Receipt Date: 20100929
  Transmission Date: 20110411
  Serious: Yes (Other)
  Sender: FDA-Public Use
  Company Number: US-MERCK-1009USA05431

PATIENT
  Sex: Female

DRUGS (13)
  1. SINGULAIR [Suspect]
     Route: 048
  2. NEURONTIN [Suspect]
     Route: 065
  3. EFFEXOR XR [Suspect]
     Route: 065
  4. LEVOTHROID [Suspect]
     Route: 065
  5. ABILIFY [Suspect]
     Route: 065
  6. BUSPAR [Suspect]
     Route: 065
  7. SEROQUEL [Suspect]
     Route: 065
  8. NEXIUM [Suspect]
     Route: 065
  9. ATROVENT [Suspect]
     Route: 065
  10. FLOVENT [Suspect]
     Route: 065
  11. FLEXERIL [Suspect]
     Route: 048
  12. LITHIUM CARBONATE [Suspect]
     Route: 065
  13. TRAMADOL HYDROCHLORIDE [Suspect]
     Route: 065

REACTIONS (3)
  - DRUG INEFFECTIVE [None]
  - DRUG INTERACTION [None]
  - HYPOTHYROIDISM [None]
